FAERS Safety Report 7530714-6 (Version None)
Quarter: 2011Q2

REPORT INFORMATION
  Report Type: 
  Country: None (occurrence: None)
  Receive Date: 20110607
  Receipt Date: 20110602
  Transmission Date: 20111010
  Serious: Yes (Other)
  Sender: FDA-Public Use
  Company Number: JP-PFIZER INC-2011103992

PATIENT
  Age: 36 Year
  Sex: Female

DRUGS (10)
  1. MONILAC [Concomitant]
     Dosage: 10 ML, 3X/DAY
     Dates: start: 20110427
  2. ITRACONAZOLE [Concomitant]
     Indication: ANTIFUNGAL TREATMENT
     Dosage: 200 MG, 1X/DAY
     Dates: start: 20110427
  3. SULFAMETHOXAZOLE [Concomitant]
     Indication: ANTIFUNGAL TREATMENT
     Dosage: 1 DF, 1X/DAY
     Dates: start: 20110427
  4. ZOLOFT [Suspect]
     Indication: PANIC DISORDER
     Dosage: UNK
     Route: 048
     Dates: start: 20110427
  5. ZOLOFT [Suspect]
     Dosage: 50 MG, 1X/DAY
     Dates: start: 20110514, end: 20110528
  6. MILMAG [Concomitant]
     Dosage: 20 ML, 3X/DAY
     Dates: start: 20110427
  7. GLUCONSAN K [Concomitant]
     Indication: ELECTROLYTE SUBSTITUTION THERAPY
     Dosage: 1 G, 3X/DAY
     Dates: start: 20110427
  8. LORAZEPAM [Concomitant]
     Indication: ANXIOLYTIC THERAPY
     Dosage: 0.5 MG, 2X/DAY
     Dates: start: 20110427
  9. ZOLOFT [Suspect]
     Dosage: 50 MG, 2X/DAY
     Dates: start: 20110511, end: 20110513
  10. GLEEVEC [Suspect]
     Indication: LEUKAEMIA
     Dosage: 600 MG, 1X/DAY
     Dates: start: 20110427, end: 20110509

REACTIONS (1)
  - GASTRIC ULCER HAEMORRHAGE [None]
